FAERS Safety Report 6464064-6 (Version None)
Quarter: 2009Q4

REPORT INFORMATION
  Report Type: 
  Country: None (occurrence: None)
  Receive Date: 20091201
  Receipt Date: 20091120
  Transmission Date: 20100525
  Serious: Yes (Hospitalization)
  Sender: FDA-Public Use
  Company Number: DE-AMGEN-US373021

PATIENT
  Sex: Female
  Weight: 82 kg

DRUGS (3)
  1. ENBREL [Suspect]
     Indication: ANKYLOSING SPONDYLITIS
     Route: 058
     Dates: start: 20070124, end: 20091013
  2. ARAVA [Concomitant]
     Indication: ANKYLOSING SPONDYLITIS
     Route: 048
  3. GLUCOCORTICOIDS [Concomitant]
     Indication: ANKYLOSING SPONDYLITIS
     Dosage: TAPERING FROM 20 MG DAILY
     Route: 048

REACTIONS (5)
  - AMYLOIDOSIS [None]
  - CONDITION AGGRAVATED [None]
  - CYSTITIS [None]
  - PYELONEPHRITIS [None]
  - RHEUMATOID ARTHRITIS [None]
